FAERS Safety Report 9236967 (Version 2)
Quarter: 2013Q2

REPORT INFORMATION
  Report Type: Report from Study
  Country: JP (occurrence: JP)
  Receive Date: 20130417
  Receipt Date: 20130610
  Transmission Date: 20140414
  Serious: Yes (Hospitalization, Other)
  Sender: FDA-Public Use
  Company Number: JP-AMGEN-JPNCT2013026554

PATIENT
  Age: 38 Year
  Sex: Male
  Weight: 107 kg

DRUGS (31)
  1. DARBEPOETIN ALFA [Suspect]
     Indication: NEPHROGENIC ANAEMIA
     Dosage: 30 MUG, QD
     Route: 058
     Dates: start: 20110221, end: 20110221
  2. DARBEPOETIN ALFA [Suspect]
     Dosage: 30 MUG, QD
     Route: 058
     Dates: start: 20110307, end: 20110307
  3. DARBEPOETIN ALFA [Suspect]
     Dosage: 60 MUG, Q4WK
     Route: 058
     Dates: start: 20110613, end: 20110905
  4. DARBEPOETIN ALFA [Suspect]
     Dosage: 60 MUG, UNK
     Route: 058
     Dates: start: 20111012, end: 20111219
  5. DARBEPOETIN ALFA [Suspect]
     Dosage: 60 MUG, Q2WK
     Route: 058
     Dates: start: 20120110, end: 20120207
  6. DARBEPOETIN ALFA [Suspect]
     Dosage: 60 MUG, QD
     Route: 058
     Dates: start: 20120309, end: 20120309
  7. DARBEPOETIN ALFA [Suspect]
     Dosage: 60 MUG, QD
     Route: 042
     Dates: start: 20120406, end: 20120406
  8. DARBEPOETIN ALFA [Suspect]
     Dosage: 60 MUG, QD
     Route: 058
     Dates: start: 20120618, end: 20120618
  9. DARBEPOETIN ALFA [Suspect]
     Dosage: 60 MUG, QD
     Route: 058
     Dates: start: 20120704, end: 20120704
  10. DARBEPOETIN ALFA [Suspect]
     Dosage: 60 MUG, QD
     Route: 042
     Dates: start: 20120717, end: 20120717
  11. DARBEPOETIN ALFA [Suspect]
     Dosage: 60 MUG, QD
     Route: 058
     Dates: start: 20120804, end: 20120804
  12. DARBEPOETIN ALFA [Suspect]
     Dosage: 120 MUG, QD
     Route: 058
     Dates: start: 20120814, end: 20120814
  13. DARBEPOETIN ALFA [Suspect]
     Dosage: 120 MUG, QD
     Route: 058
     Dates: start: 20120919, end: 20120919
  14. DARBEPOETIN ALFA [Suspect]
     Dosage: 120 MUG, QD
     Route: 058
     Dates: start: 20121009, end: 20121009
  15. DARBEPOETIN ALFA [Suspect]
     Dosage: 120 MUG, QD
     Route: 058
     Dates: start: 20121018, end: 20121018
  16. DARBEPOETIN ALFA [Suspect]
     Dosage: 120 MUG, QD
     Route: 058
     Dates: start: 20121101, end: 20121101
  17. DARBEPOETIN ALFA [Suspect]
     Dosage: 120 MUG, QD
     Route: 058
     Dates: start: 20121220, end: 20121220
  18. DARBEPOETIN ALFA [Suspect]
     Dosage: 120 MUG, QD
     Route: 058
     Dates: start: 20130108, end: 20130108
  19. DARBEPOETIN ALFA [Suspect]
     Dosage: 120 MUG, QD
     Route: 058
     Dates: start: 20130118, end: 20130118
  20. DARBEPOETIN ALFA [Suspect]
     Dosage: 120 MUG, QD
     Route: 058
     Dates: start: 20130226, end: 20130226
  21. ATELEC [Concomitant]
     Dosage: UNK
     Route: 048
  22. ANOPROLIN [Concomitant]
     Dosage: UNK
     Route: 048
  23. DIOVAN [Concomitant]
     Dosage: UNK
     Route: 048
  24. SODIUM BICARBONATE [Concomitant]
     Dosage: UNK
     Route: 048
  25. ARGAMATE [Concomitant]
     Dosage: UNK
     Route: 048
  26. FEBURIC [Concomitant]
     Dosage: UNK
     Route: 048
  27. LASIX [Concomitant]
     Dosage: UNK
     Route: 048
  28. BENZMARONE [Concomitant]
     Dosage: UNK
     Route: 048
  29. CALTAN [Concomitant]
     Indication: GLOMERULONEPHRITIS CHRONIC
     Dosage: UNK
     Route: 048
  30. FERROMIA [Concomitant]
     Indication: GLOMERULONEPHRITIS CHRONIC
     Dosage: UNK
     Route: 048
  31. AZUCURENIN S [Concomitant]
     Indication: GLOMERULONEPHRITIS CHRONIC
     Dosage: UNK
     Route: 048

REACTIONS (4)
  - Neoplasm skin [Unknown]
  - Joint swelling [Recovering/Resolving]
  - Blood potassium increased [Recovering/Resolving]
  - Erythema [Recovering/Resolving]
